FAERS Safety Report 16669438 (Version 2)
Quarter: 2019Q3

REPORT INFORMATION
  Report Type: Spontaneous
  Country: NL (occurrence: NL)
  Receive Date: 20190805
  Receipt Date: 20190821
  Transmission Date: 20191004
  Serious: Yes (Death, Hospitalization, Other)
  Sender: FDA-Public Use
  Company Number: NL-MYLANLABS-2019M1073049

PATIENT
  Age: 73 Year
  Sex: Male

DRUGS (2)
  1. PREDNISONE. [Suspect]
     Active Substance: PREDNISONE
     Indication: IMMUNOSUPPRESSANT DRUG THERAPY
     Dosage: UNK
     Route: 065
     Dates: end: 2012
  2. METHOTREXATE. [Suspect]
     Active Substance: METHOTREXATE
     Indication: IMMUNOSUPPRESSANT DRUG THERAPY
     Dosage: UNK
     Route: 065
     Dates: end: 2012

REACTIONS (8)
  - Listeriosis [Fatal]
  - Cardiopulmonary failure [Fatal]
  - Meningitis listeria [Fatal]
  - Septic shock [Fatal]
  - Cardiac failure [Unknown]
  - Oedema [Not Recovered/Not Resolved]
  - CNS ventriculitis [Not Recovered/Not Resolved]
  - Respiratory failure [Unknown]

NARRATIVE: CASE EVENT DATE: 2012
